FAERS Safety Report 17393102 (Version 1)
Quarter: 2020Q1

REPORT INFORMATION
  Report Type: Spontaneous
  Country: US (occurrence: US)
  Receive Date: 20200208
  Receipt Date: 20200208
  Transmission Date: 20200409
  Serious: Yes (Hospitalization, Other)
  Sender: FDA-Public Use
  Company Number: US-QUAGEN PHARMA LLC-2020QUALIT00018

PATIENT
  Age: 37 Year
  Sex: Male

DRUGS (5)
  1. MAGNESIUM SULFATE. [Suspect]
     Active Substance: MAGNESIUM SULFATE
  2. TERBUTALINE [Suspect]
     Active Substance: TERBUTALINE
  3. THEOPHYLLINE [Suspect]
     Active Substance: THEOPHYLLINE ANHYDROUS
  4. ALBUTEROL SULFATE SYRUP [Suspect]
     Active Substance: ALBUTEROL SULFATE
  5. KETAMINE [Suspect]
     Active Substance: KETAMINE

REACTIONS (4)
  - Respiratory acidosis [Recovering/Resolving]
  - Condition aggravated [Recovering/Resolving]
  - Drug ineffective [None]
  - Respiratory disorder [Unknown]
